FAERS Safety Report 20518437 (Version 1)
Quarter: 2022Q1

REPORT INFORMATION
  Report Type: Spontaneous
  Country: US (occurrence: US)
  Receive Date: 20220225
  Receipt Date: 20220225
  Transmission Date: 20220424
  Serious: No
  Sender: FDA-Public Use
  Company Number: US-SA-SAC20220221000645

PATIENT
  Sex: Male

DRUGS (3)
  1. AUBAGIO [Suspect]
     Active Substance: TERIFLUNOMIDE
     Indication: Multiple sclerosis
     Dosage: 1 DF, QD
     Route: 048
     Dates: start: 202112
  2. GABAPENTIN [Concomitant]
     Active Substance: GABAPENTIN
     Dosage: UNK
  3. LORAZEPAM [Concomitant]
     Active Substance: LORAZEPAM
     Dosage: UNK

REACTIONS (3)
  - Feeling abnormal [Unknown]
  - Extra dose administered [Unknown]
  - Therapy interrupted [Unknown]
